FAERS Safety Report 17121486 (Version 1)
Quarter: 2019Q4

REPORT INFORMATION
  Report Type: Spontaneous
  Country: FR (occurrence: FR)
  Receive Date: 20191206
  Receipt Date: 20191206
  Transmission Date: 20200122
  Serious: Yes (Life-Threatening, Hospitalization, Other)
  Sender: FDA-Public Use
  Company Number: FR-GLAXOSMITHKLINE-FR2019219706

PATIENT
  Age: 12 Year
  Sex: Female
  Weight: 35 kg

DRUGS (5)
  1. SEVOFLURANE. [Suspect]
     Active Substance: SEVOFLURANE
     Indication: ANAESTHESIA
     Dosage: UNK
     Route: 055
     Dates: start: 20191120, end: 20191120
  2. SUFENTANIL [Concomitant]
     Active Substance: SUFENTANIL
     Indication: ANAESTHESIA
     Dosage: 20 ?G, SINGLE
     Route: 042
     Dates: start: 20191120, end: 20191120
  3. CEFUROXIME SODIUM. [Suspect]
     Active Substance: CEFUROXIME SODIUM
     Indication: ANTIBIOTIC PROPHYLAXIS
     Dosage: 1050 MG, SINGLE
     Route: 042
     Dates: start: 20191120, end: 20191120
  4. VISIPAQUE [Suspect]
     Active Substance: IODIXANOL
     Indication: ANGIOGRAM
     Dosage: 39 ML, SINGLE
     Route: 042
     Dates: start: 20191120, end: 20191120
  5. HEPARINE (HEPARIN) [Suspect]
     Active Substance: HEPARIN SODIUM
     Indication: PROPHYLAXIS
     Dosage: 2000 IU, SINGLE
     Route: 042
     Dates: start: 20191120, end: 20191120

REACTIONS (3)
  - Hypoxia [Recovered/Resolved]
  - Bronchospasm [Recovered/Resolved]
  - Urticaria [Recovered/Resolved]

NARRATIVE: CASE EVENT DATE: 20191120
